FAERS Safety Report 22139280 (Version 1)
Quarter: 2023Q1

REPORT INFORMATION
  Report Type: Spontaneous
  Country: SG (occurrence: SG)
  Receive Date: 20230327
  Receipt Date: 20230327
  Transmission Date: 20230418
  Serious: No
  Sender: FDA-Public Use
  Company Number: SG-PADAGIS-2023PAD00358

PATIENT

DRUGS (9)
  1. CETIRIZINE HYDROCHLORIDE [Suspect]
     Active Substance: CETIRIZINE HYDROCHLORIDE
     Indication: Premedication
     Dosage: UNK
     Route: 065
  2. CETIRIZINE HYDROCHLORIDE [Suspect]
     Active Substance: CETIRIZINE HYDROCHLORIDE
     Dosage: 1.5 MG/KG
     Route: 048
  3. PREDNISOLONE [Suspect]
     Active Substance: PREDNISOLONE
     Indication: Premedication
     Dosage: UNK
     Route: 065
  4. PREDNISOLONE [Suspect]
     Active Substance: PREDNISOLONE
     Dosage: 500 MCG/KG/HR
     Route: 048
  5. MYOZYME [Concomitant]
     Active Substance: ALGLUCOSIDASE ALFA
     Indication: Glycogen storage disease type II
     Dosage: 20 MG/KG
     Route: 065
  6. MYOZYME [Concomitant]
     Active Substance: ALGLUCOSIDASE ALFA
     Dosage: INFUSION WAS SLOWED TO A THIRD OF THE INITIAL RATE
     Route: 065
  7. MYOZYME [Concomitant]
     Active Substance: ALGLUCOSIDASE ALFA
     Dosage: 500 MCG/KG/HR
     Route: 065
  8. MYOZYME [Concomitant]
     Active Substance: ALGLUCOSIDASE ALFA
     Dosage: 250 MCG/KG/HR DECREASE IN INFUSION RATE
     Route: 065
  9. MYOZYME [Concomitant]
     Active Substance: ALGLUCOSIDASE ALFA
     Dosage: GRADUAL INCREASE UP TO 2000 MCG/KG/HR (2MG/KG/HR)
     Route: 065

REACTIONS (2)
  - Drug ineffective [Unknown]
  - Product use issue [Unknown]
